FAERS Safety Report 11419670 (Version 2)
Quarter: 2015Q4

REPORT INFORMATION
  Report Type: Report from Study
  Country: RU (occurrence: RU)
  Receive Date: 20150826
  Receipt Date: 20151007
  Transmission Date: 20160304
  Serious: Yes (Hospitalization)
  Sender: FDA-Public Use
  Company Number: PHHO2015RU010905

PATIENT
  Age: 4 Year
  Sex: Female

DRUGS (3)
  1. BLINDED PLACEBO [Suspect]
     Active Substance: INVESTIGATIONAL PRODUCT
     Indication: PYREXIA
     Dosage: CODE NOT BROKEN
     Route: 058
     Dates: start: 20150302
  2. BLINDED NO TREATMENT RECEIVED [Suspect]
     Active Substance: INVESTIGATIONAL PRODUCT
     Indication: PYREXIA
     Dosage: CODE NOT BROKEN
     Route: 058
     Dates: start: 20150302
  3. BLINDED ACZ885 [Suspect]
     Active Substance: CANAKINUMAB
     Indication: PYREXIA
     Dosage: CODE NOT BROKEN
     Route: 058
     Dates: start: 20150302

REACTIONS (1)
  - Adenoiditis [Unknown]

NARRATIVE: CASE EVENT DATE: 20150226
